FAERS Safety Report 4455448-6 (Version None)
Quarter: 2004Q3

REPORT INFORMATION
  Report Type: 
  Country: None (occurrence: None)
  Receive Date: 20040917
  Receipt Date: 20040901
  Transmission Date: 20050211
  Serious: Yes (Death, Hospitalization)
  Sender: FDA-Public Use
  Company Number: FR_040904663

PATIENT
  Age: 83 Year
  Sex: Male
  Weight: 45 kg

DRUGS (6)
  1. GEMZAR [Suspect]
     Indication: PLEURAL NEOPLASM
     Dates: end: 20040201
  2. AMLODIPINE BESYLATE [Concomitant]
  3. COTAREG [Concomitant]
  4. MORPHINE SULFATE [Concomitant]
  5. EXOMUC (ACETYLCYSTEINE M/G) [Concomitant]
  6. RULID (ROXITHROMYCIN) [Concomitant]

REACTIONS (18)
  - ARTHROPATHY [None]
  - BRONCHITIS [None]
  - COAGULATION FACTOR V LEVEL DECREASED [None]
  - CYANOSIS [None]
  - CYTOLYTIC HEPATITIS [None]
  - FALL [None]
  - HEPATIC FAILURE [None]
  - HEPATIC NEOPLASM [None]
  - HEPATITIS FULMINANT [None]
  - HEPATOMEGALY [None]
  - HYPERKALAEMIA [None]
  - HYPONATRAEMIA [None]
  - HYPOTENSION [None]
  - ISCHAEMIC HEPATITIS [None]
  - OEDEMA PERIPHERAL [None]
  - PROTHROMBIN LEVEL DECREASED [None]
  - RENAL FAILURE [None]
  - SKIN DISCOLOURATION [None]
